FAERS Safety Report 8947850 (Version 1)
Quarter: 2012Q4

REPORT INFORMATION
  Report Type: Spontaneous
  Country: US (occurrence: None)
  Receive Date: 20121127
  Receipt Date: 20121127
  Transmission Date: 20130627
  Serious: Yes (Disabling, Other)
  Sender: FDA-Public Use
  Company Number: AUR-APL-2012-04945

PATIENT
  Age: 48 Year
  Sex: Male
  Weight: 87.07 kg

DRUGS (18)
  1. ZOLPIDEM TARTRATE [Concomitant]
  2. SOMA (CARISOPRODOL) [Concomitant]
  3. CIALIS (TADALAFIL) [Concomitant]
  4. METFORMIN (METFORMIN) [Suspect]
     Indication: TYPE 2 DIABETES MELLITUS
     Dosage: two tablets in the morning and one at night
  5. GLIMEPIRIDE [Suspect]
     Indication: TYPE 2 DIABETES MELLITUS
     Route: 048
  6. LIPITOR (ATORVASTATIN CALCIUM) [Suspect]
     Indication: HIGH CHOLESTEROL
     Dates: start: 201007
  7. LIPITOR (ATORVASTATIN CALCIUM) [Suspect]
     Indication: HIGH CHOLESTEROL
     Route: 048
  8. VIAGRA [Suspect]
     Indication: BLOOD PRESSURE HIGH
     Route: 048
     Dates: start: 201007
  9. VIAGRA [Suspect]
     Indication: DIABETES
     Route: 048
     Dates: start: 201007
  10. OXYCODONE [Suspect]
     Indication: DRUG USE FOR UNKNOWN INDICATION
     Route: 048
  11. LANTUS [Suspect]
     Indication: TYPE 2 DIABETES MELLITUS
     Dosage: 1 in 1 d, unknown
  12. AVANDIA [Suspect]
     Indication: TYPE 2 DIABETES MELLITUS
     Route: 048
  13. TRAZODONE [Concomitant]
  14. AMITRIPTYLINE [Concomitant]
  15. CLONAZEPAM [Concomitant]
  16. IBUPROFEN [Concomitant]
  17. SIMVASTATIN [Concomitant]
  18. LITHIUM CARBONATE [Concomitant]

REACTIONS (8)
  - Localised infection [None]
  - Hypertension [None]
  - Diabetes mellitus inadequate control [None]
  - Neuropathy peripheral [None]
  - Pain in extremity [None]
  - Blood glucose decreased [None]
  - Loss of consciousness [None]
  - Back pain [None]
